FAERS Safety Report 6473279-2 (Version None)
Quarter: 2009Q4

REPORT INFORMATION
  Report Type: 
  Country: None (occurrence: None)
  Receive Date: 20091204
  Receipt Date: 20081110
  Transmission Date: 20100525
  Serious: Yes (Other)
  Sender: FDA-Public Use
  Company Number: FR-ELI_LILLY_AND_COMPANY-FR200807004775

PATIENT
  Age: 54 Year
  Sex: Male
  Weight: 72 kg

DRUGS (10)
  1. ZYPREXA [Suspect]
     Indication: DYSTHYMIC DISORDER
     Dosage: 10 MG, DAILY (1/D)
     Route: 048
     Dates: start: 20080101, end: 20080630
  2. ZYPREXA [Suspect]
     Dosage: 15 MG, DAILY (1/D)
     Route: 048
     Dates: start: 20080630, end: 20080723
  3. BENZODIAZEPINE DERIVATIVES [Concomitant]
     Indication: PSYCHOTIC DISORDER
     Route: 048
  4. SSRI [Concomitant]
     Indication: PSYCHOTIC DISORDER
     Route: 048
  5. VENLAFAXINE [Concomitant]
     Indication: DYSTHYMIC DISORDER
     Dosage: 225 MG, DAILY (1/D)
     Route: 048
     Dates: start: 20080301, end: 20080705
  6. FLUOXETINE [Concomitant]
     Indication: DYSTHYMIC DISORDER
     Dosage: 20 MG, DAILY (1/D)
     Route: 048
     Dates: start: 20080702
  7. ALPRAZOLAM [Concomitant]
     Indication: DYSTHYMIC DISORDER
     Dosage: 0.75 MG, DAILY (1/D)
     Route: 048
     Dates: end: 20080630
  8. LORAZEPAM [Concomitant]
     Indication: DYSTHYMIC DISORDER
     Dosage: 5 MG, DAILY (1/D)
     Route: 048
     Dates: start: 20080630, end: 20080707
  9. PRAZEPAM [Concomitant]
     Indication: DYSTHYMIC DISORDER
     Dosage: 40 MG, DAILY (1/D)
     Route: 048
     Dates: start: 20080707
  10. NOCTRAN 10 [Concomitant]
     Indication: DYSTHYMIC DISORDER
     Dosage: 10 MG, DAILY (1/D)
     Route: 048
     Dates: start: 20080711

REACTIONS (4)
  - BLOOD CHOLESTEROL INCREASED [None]
  - BLOOD TRIGLYCERIDES INCREASED [None]
  - HEPATIC STEATOSIS [None]
  - HEPATOCELLULAR INJURY [None]
